FAERS Safety Report 23395892 (Version 1)
Quarter: 2024Q1

REPORT INFORMATION
  Report Type: Spontaneous
  Country: JP (occurrence: JP)
  Receive Date: 20240112
  Receipt Date: 20240112
  Transmission Date: 20240409
  Serious: Yes (Death, Hospitalization, Other)
  Sender: FDA-Public Use
  Company Number: JP-SLATERUN-2024SRLIT00001

PATIENT
  Age: 80 Year
  Sex: Male
  Weight: 49.2 kg

DRUGS (5)
  1. CILOSTAZOL [Suspect]
     Active Substance: CILOSTAZOL
     Indication: Hypertension
     Dosage: 27 TABLETS EMPTIED MEDICATION BLISTER PACK
     Route: 065
  2. AZILSARTAN KAMEDOXOMIL [Suspect]
     Active Substance: AZILSARTAN KAMEDOXOMIL
     Indication: Hypertension
     Dosage: 16 TABLETS EMPTIED MEDICATION BLISTER PACK
     Route: 065
  3. AZILSARTAN KAMEDOXOMIL [Suspect]
     Active Substance: AZILSARTAN KAMEDOXOMIL
     Dosage: 17 TABLETS EMPTIED MEDICATION BLISTER PACK
     Route: 065
  4. NIFEDIPINE [Suspect]
     Active Substance: NIFEDIPINE
     Indication: Hypertension
     Dosage: 15 TABLETS EMPTIED MEDICATION BLISTER PACK
     Route: 065
  5. ATORVASTATIN [Suspect]
     Active Substance: ATORVASTATIN
     Indication: Hyperlipidaemia
     Dosage: 11 TABLETS EMPTIED MEDICATION BLISTER PACK
     Route: 065

REACTIONS (2)
  - Intestinal ischaemia [Fatal]
  - Overdose [Fatal]
